FAERS Safety Report 15463617 (Version 1)
Quarter: 2018Q4

REPORT INFORMATION
  Report Type: Spontaneous
  Country: US (occurrence: US)
  Receive Date: 20181001
  Receipt Date: 20181001
  Transmission Date: 20190204
  Serious: No
  Sender: FDA-Public Use
  Company Number: None

PATIENT
  Age: 76 Year
  Sex: Male

DRUGS (2)
  1. BENDEKA [Suspect]
     Active Substance: BENDAMUSTINE HYDROCHLORIDE
     Indication: WALDENSTROM^S MACROGLOBULINAEMIA
     Dates: start: 20181001
  2. RITUXAN [Concomitant]
     Active Substance: RITUXIMAB

REACTIONS (1)
  - Off label use [None]

NARRATIVE: CASE EVENT DATE: 20180927
